FAERS Safety Report 21386700 (Version 1)
Quarter: 2022Q3

REPORT INFORMATION
  Report Type: Spontaneous
  Country: DE (occurrence: DE)
  Receive Date: 20220928
  Receipt Date: 20220928
  Transmission Date: 20221027
  Serious: Yes (Hospitalization)
  Sender: FDA-Public Use
  Company Number: DE-NOVARTISPH-NVSC2022DE217056

PATIENT
  Age: 79 Year
  Sex: Female
  Weight: 83 kg

DRUGS (14)
  1. PROPIVERINE [Suspect]
     Active Substance: PROPIVERINE
     Indication: Product used for unknown indication
     Dosage: 45 MG, QD
     Route: 048
  2. PREDNISOLONE [Suspect]
     Active Substance: PREDNISOLONE
     Indication: Product used for unknown indication
     Dosage: 1 MG, QD (1-0-0-0, TABLETTEN)
     Route: 048
  3. TOCILIZUMAB [Suspect]
     Active Substance: TOCILIZUMAB
     Indication: Product used for unknown indication
     Dosage: 162 MG (NACH SCHEMA, FERTIGSPRITZEN)
     Route: 058
  4. VALSARTAN [Concomitant]
     Active Substance: VALSARTAN
     Indication: Product used for unknown indication
     Dosage: 160 MG, BID (1-0-1-0, TABLETTEN)
     Route: 048
  5. INSULIN GLARGINE [Concomitant]
     Active Substance: INSULIN GLARGINE
     Indication: Product used for unknown indication
     Dosage: 1 IE, 0-0-8-0, FERTIGSPRITZEN
     Route: 058
  6. INSULIN GLULISINE [Concomitant]
     Active Substance: INSULIN GLULISINE
     Indication: Product used for unknown indication
     Dosage: 1 IE, 7-5-5-0, FERTIGSPRITZEN
     Route: 058
  7. CALCIUMCARBONAT [Concomitant]
     Indication: Product used for unknown indication
     Dosage: 3000|0.02 MG, 1-0-0-0, BRAUSETABLETTEN
     Route: 048
  8. DOXAZOSIN [Concomitant]
     Active Substance: DOXAZOSIN MESYLATE
     Indication: Product used for unknown indication
     Dosage: 4 MG, QD (4 MG, 0-0-1-0, RETARD-TABLETTEN)
     Route: 048
  9. LERCANIDIPINE [Concomitant]
     Active Substance: LERCANIDIPINE
     Indication: Product used for unknown indication
     Dosage: 10 MG, BID (10 MG, 1-0-1-0, TABLETTEN)
     Route: 048
  10. SULPIRIDE [Concomitant]
     Active Substance: SULPIRIDE
     Indication: Product used for unknown indication
     Dosage: 100 MG, BID (1-1-0-0, TABLETTEN)
     Route: 048
  11. METOPROLOL [Concomitant]
     Active Substance: METOPROLOL
     Indication: Product used for unknown indication
     Dosage: 95 MG, BID (1-0-1-0, RETARD-TABLETTEN)
     Route: 048
  12. TORSEMIDE [Concomitant]
     Active Substance: TORSEMIDE
     Indication: Product used for unknown indication
     Dosage: 10 MG, QD (0.5-0-0-0, TABLETTEN)
     Route: 048
  13. PANTOPRAZOLE [Concomitant]
     Active Substance: PANTOPRAZOLE
     Indication: Product used for unknown indication
     Dosage: 40 MG, QD (40 MG, 1-0-0-0, RETARD-TABLETTEN)
     Route: 048
  14. DULOXETINE [Concomitant]
     Active Substance: DULOXETINE
     Indication: Product used for unknown indication
     Dosage: 20 MG, QD (20 MG, 1-0-0-0, RETARD-KAPSELN)
     Route: 048

REACTIONS (6)
  - Confusional state [Unknown]
  - Memory impairment [Unknown]
  - Muscular weakness [Unknown]
  - General physical health deterioration [Unknown]
  - Headache [Unknown]
  - Fatigue [Unknown]
